FAERS Safety Report 7677609-5 (Version None)
Quarter: 2011Q3

REPORT INFORMATION
  Report Type: 
  Country: None (occurrence: None)
  Receive Date: 20110811
  Receipt Date: 20110729
  Transmission Date: 20111222
  Serious: Yes (Hospitalization, Other)
  Sender: FDA-Public Use
  Company Number: US-CELGENEUS-163-21880-11051887

PATIENT
  Sex: Male
  Weight: 69.008 kg

DRUGS (9)
  1. REVLIMID [Suspect]
     Indication: MYELODYSPLASTIC SYNDROME
     Dosage: 10 MILLIGRAM
     Route: 048
     Dates: start: 20100406
  2. REVLIMID [Suspect]
     Dosage: 5 MILLIGRAM
     Route: 048
     Dates: start: 20101201
  3. ALBUTEROL SULFATE AUTOHALER [Concomitant]
     Route: 065
  4. AMLODIPINE [Concomitant]
     Route: 065
  5. OMEPRAZOLE [Concomitant]
     Route: 065
  6. CILOSTAZOL [Concomitant]
     Route: 065
  7. NAPROXEN (ALEVE) [Concomitant]
     Route: 065
  8. SYNTHROID [Concomitant]
     Route: 065
  9. REVLIMID [Suspect]
     Dosage: 5-15
     Route: 048
     Dates: start: 20100501

REACTIONS (4)
  - NEUTROPENIA [None]
  - SKIN ULCER [None]
  - CELLULITIS [None]
  - WHITE BLOOD CELL COUNT DECREASED [None]
